FAERS Safety Report 25035608 (Version 4)
Quarter: 2025Q2

REPORT INFORMATION
  Report Type: Spontaneous
  Country: CA (occurrence: None)
  Receive Date: 20250304
  Receipt Date: 20250520
  Transmission Date: 20250717
  Serious: Yes (Other)
  Sender: ORION
  Company Number: CA-PFIZER INC-202500043545

PATIENT
  Age: 48 Year
  Sex: Female

DRUGS (13)
  1. METHOTREXATE [Suspect]
     Active Substance: METHOTREXATE
     Indication: Rheumatoid arthritis
     Dates: start: 2010
  2. METHOTREXATE [Suspect]
     Active Substance: METHOTREXATE
     Dates: start: 201707, end: 202411
  3. METHOTREXATE [Suspect]
     Active Substance: METHOTREXATE
  4. ACTEMRA [Concomitant]
     Active Substance: TOCILIZUMAB
     Dates: start: 202407, end: 20250127
  5. ARAVA [Concomitant]
     Active Substance: LEFLUNOMIDE
     Dates: start: 2012, end: 2014
  6. PREDNISONE [Concomitant]
     Active Substance: PREDNISONE
     Dates: start: 2021, end: 2022
  7. PREDNISONE [Concomitant]
     Active Substance: PREDNISONE
     Dates: start: 202403
  8. SULFASALAZINE [Concomitant]
     Active Substance: SULFASALAZINE
     Dates: start: 2012, end: 2014
  9. SULFASALAZINE [Concomitant]
     Active Substance: SULFASALAZINE
     Dates: start: 201106, end: 201211
  10. PLAQUENIL [Concomitant]
     Active Substance: HYDROXYCHLOROQUINE SULFATE
     Dates: start: 2014, end: 2017
  11. XELJANZ [Concomitant]
     Active Substance: TOFACITINIB CITRATE
     Dates: start: 2018, end: 202211
  12. RINVOQ [Concomitant]
     Active Substance: UPADACITINIB
     Dates: start: 202211, end: 202303
  13. SIMPONI [Concomitant]
     Active Substance: GOLIMUMAB
     Dates: start: 202306, end: 202406

REACTIONS (4)
  - Knee arthroplasty [Unknown]
  - Treatment failure [Unknown]
  - Liver disorder [Unknown]
  - Rheumatoid arthritis [Not Recovered/Not Resolved]

NARRATIVE: CASE EVENT DATE: 20230101
